FAERS Safety Report 10033146 (Version 2)
Quarter: 2014Q2

REPORT INFORMATION
  Report Type: Spontaneous
  Country: US (occurrence: US)
  Receive Date: 20140324
  Receipt Date: 20140403
  Transmission Date: 20141212
  Serious: Yes (Hospitalization, Other)
  Sender: FDA-Public Use
  Company Number: US-GILEAD-2014-0097470

PATIENT
  Sex: Female

DRUGS (2)
  1. LETAIRIS [Suspect]
     Indication: PRODUCT USED FOR UNKNOWN INDICATION
     Dosage: 10 MG, QD
     Route: 065
     Dates: start: 20080501
  2. ADCIRCA [Concomitant]
     Indication: PRODUCT USED FOR UNKNOWN INDICATION

REACTIONS (9)
  - Dehydration [Unknown]
  - Blood pressure decreased [Unknown]
  - Head injury [Unknown]
  - Fall [Unknown]
  - Loss of consciousness [Unknown]
  - Headache [Unknown]
  - Syncope [Unknown]
  - Hypoaesthesia oral [Unknown]
  - Dizziness [Unknown]
